FAERS Safety Report 25392862 (Version 2)
Quarter: 2025Q3

REPORT INFORMATION
  Report Type: Spontaneous
  Country: US (occurrence: US)
  Receive Date: 20250604
  Receipt Date: 20250708
  Transmission Date: 20251021
  Serious: No
  Sender: SANOFI AVENTIS
  Company Number: US-SA-2025SA156335

PATIENT
  Age: 51 Year
  Sex: Male

DRUGS (4)
  1. ALPROLIX [Suspect]
     Active Substance: EFTRENONACOG ALFA
     Dosage: IINFUSE 9020 UNITS (+/- 10%) ONCE WEEKLY FOR PROPHYLAXIS AND EVERY 12-24 HOURS AS NEEDED
     Route: 042
  2. ALPROLIX [Suspect]
     Active Substance: EFTRENONACOG ALFA
     Dosage: IINFUSE 9020 UNITS (+/- 10%) ONCE WEEKLY FOR PROPHYLAXIS AND EVERY 12-24 HOURS AS NEEDED
     Route: 042
  3. ALPROLIX [Suspect]
     Active Substance: EFTRENONACOG ALFA
     Route: 042
  4. ALPROLIX [Suspect]
     Active Substance: EFTRENONACOG ALFA
     Route: 042

REACTIONS (2)
  - Haemorrhage [Unknown]
  - Bone disorder [Unknown]

NARRATIVE: CASE EVENT DATE: 20250524
